FAERS Safety Report 6879664-9 (Version None)
Quarter: 2010Q3

REPORT INFORMATION
  Report Type: 
  Country: None (occurrence: None)
  Receive Date: 20100728
  Receipt Date: 20100719
  Transmission Date: 20110219
  Serious: Yes (Disabling)
  Sender: FDA-Public Use
  Company Number: US-PURDUE-USA-2010-0044795

PATIENT
  Sex: Female
  Weight: 54.422 kg

DRUGS (1)
  1. OXYCONTIN [Suspect]
     Indication: PAIN
     Dosage: 1 TABLET, Q12H
     Dates: start: 20100526, end: 20100609

REACTIONS (6)
  - ACTIVITIES OF DAILY LIVING IMPAIRED [None]
  - ASTHENIA [None]
  - DRUG INEFFECTIVE [None]
  - DRUG INTOLERANCE [None]
  - NAUSEA [None]
  - UNEVALUABLE EVENT [None]
